FAERS Safety Report 7371441-8 (Version None)
Quarter: 2011Q1

REPORT INFORMATION
  Report Type: 
  Country: None (occurrence: None)
  Receive Date: 20110324
  Receipt Date: 20110321
  Transmission Date: 20110831
  Serious: No
  Sender: FDA-Public Use
  Company Number: GB-PFIZER INC-2011020364

PATIENT
  Age: 73 Year
  Sex: Female

DRUGS (15)
  1. BENDROFLUMETHIAZIDE [Concomitant]
     Dosage: UNK
  2. PREGABALIN [Concomitant]
     Dosage: UNK
  3. LANSOPRAZOLE [Concomitant]
     Dosage: UNK
  4. MIRTAZAPINE [Concomitant]
     Dosage: UNK
  5. CARDURA [Suspect]
     Indication: BLOOD PRESSURE
     Dosage: 8 MG, UNK
  6. TETRABENAZINE [Concomitant]
     Dosage: UNK
  7. LERCANIDIPINE [Concomitant]
     Dosage: UNK
  8. PARACETAMOL [Concomitant]
     Dosage: UNK
  9. ACETYLSALICYLIC ACID [Concomitant]
     Dosage: UNK
  10. SENNA [Concomitant]
     Dosage: UNK
  11. DIAZEPAM [Concomitant]
     Dosage: UNK
  12. SALBUTAMOL [Concomitant]
     Dosage: UNK
  13. ATORVASTATIN [Concomitant]
     Dosage: UNK
  14. ZOPICLONE [Concomitant]
     Dosage: UNK
  15. GAVISCON [Concomitant]
     Dosage: UNK

REACTIONS (1)
  - NO ADVERSE EVENT [None]
